APPROVED DRUG PRODUCT: CIMETIDINE HYDROCHLORIDE IN SODIUM CHLORIDE 0.9% IN PLASTIC CONTAINER
Active Ingredient: CIMETIDINE HYDROCHLORIDE
Strength: EQ 6MG BASE/ML
Dosage Form/Route: INJECTABLE;INJECTION
Application: A074269 | Product #001
Applicant: HOSPIRA WORLDWIDE, INC
Approved: Dec 27, 1994 | RLD: No | RS: No | Type: DISCN